FAERS Safety Report 4989963-3 (Version None)
Quarter: 2006Q2

REPORT INFORMATION
  Report Type: 
  Country: None (occurrence: None)
  Receive Date: 20060427
  Receipt Date: 20060410
  Transmission Date: 20061013
  Serious: Yes (Other)
  Sender: FDA-Public Use
  Company Number: 224373

PATIENT
  Sex: Female

DRUGS (2)
  1. HERCEPTIN                           (TRASTUZUMAB) PWDR + SOLVENT [Suspect]
     Indication: BREAST CANCER
     Dosage: Q3W, INTRAVENOUS
     Route: 042
     Dates: start: 20051115
  2. TAXOTERE [Concomitant]

REACTIONS (2)
  - CEREBRAL HAEMORRHAGE [None]
  - FALL [None]
